FAERS Safety Report 25073132 (Version 3)
Quarter: 2025Q2

REPORT INFORMATION
  Report Type: Spontaneous
  Country: AU (occurrence: AU)
  Receive Date: 20250313
  Receipt Date: 20250605
  Transmission Date: 20250717
  Serious: Yes (Hospitalization, Other)
  Sender: Kenvue
  Company Number: None

PATIENT

DRUGS (16)
  1. ACETAMINOPHEN [Suspect]
     Active Substance: ACETAMINOPHEN
     Indication: Cancer pain
     Dosage: 1 GRAM, FOUR TIME A DAY (4 G A DAY)
     Route: 065
  2. FENTANYL [Suspect]
     Active Substance: FENTANYL
     Indication: Cancer pain
     Dosage: 100 MICROGRAM, EVERY HOUR
     Route: 065
  3. GABAPENTIN [Suspect]
     Active Substance: GABAPENTIN
     Indication: Cancer pain
     Dosage: 300 MILLIGRAM, THRICE A DAY
     Route: 065
  4. KETAMINE HYDROCHLORIDE [Suspect]
     Active Substance: KETAMINE HYDROCHLORIDE
     Indication: Cancer pain
     Route: 065
  5. LIDOCAINE [Suspect]
     Active Substance: LIDOCAINE
     Indication: Cancer pain
     Dosage: UNK UNK, ONCE A DAY
     Route: 065
  6. MORPHINE SULFATE [Suspect]
     Active Substance: MORPHINE SULFATE
     Indication: Cancer pain
     Dosage: 150 MILLIGRAM, TWICE A DAY, (300 MILLIGRAM ONE DAY)
     Route: 065
  7. MORPHINE SULFATE [Suspect]
     Active Substance: MORPHINE SULFATE
     Route: 048
  8. MORPHINE SULFATE [Suspect]
     Active Substance: MORPHINE SULFATE
     Dosage: 60 MILLIGRAM, ONCE A DAY
     Route: 048
  9. MORPHINE SULFATE [Suspect]
     Active Substance: MORPHINE SULFATE
     Dosage: 300 MILLIGRAM, ONCE A DAY
     Route: 048
  10. OXYCODONE [Suspect]
     Active Substance: OXYCODONE
     Indication: Cancer pain
     Dosage: 100 MILLIGRAM, TWICE A DAY
     Route: 065
  11. PARECOXIB SODIUM [Suspect]
     Active Substance: PARECOXIB SODIUM
     Indication: Cancer pain
     Dosage: 40 MILLIGRAM, ONCE A DAY
     Route: 065
  12. PREGABALIN [Suspect]
     Active Substance: PREGABALIN
     Indication: Cancer pain
     Dosage: 150 MILLIGRAM, TWICE A DAY
     Route: 065
  13. CISPLATIN [Concomitant]
     Active Substance: CISPLATIN
     Indication: Pleural mesothelioma malignant
     Route: 065
  14. IPILIMUMAB [Concomitant]
     Active Substance: IPILIMUMAB
     Indication: Pleural mesothelioma malignant
     Route: 065
  15. NIVOLUMAB [Concomitant]
     Active Substance: NIVOLUMAB
     Indication: Pleural mesothelioma malignant
     Route: 065
  16. PEMETREXED [Concomitant]
     Active Substance: PEMETREXED
     Indication: Pleural mesothelioma malignant
     Route: 065

REACTIONS (7)
  - Cognitive disorder [Unknown]
  - Drug intolerance [Unknown]
  - Neurotoxicity [Unknown]
  - Confusional state [Recovering/Resolving]
  - Somnolence [Recovering/Resolving]
  - Myoclonus [Recovering/Resolving]
  - Therapeutic product effect incomplete [Unknown]
